FAERS Safety Report 6143544-7 (Version None)
Quarter: 2009Q2

REPORT INFORMATION
  Report Type: 
  Country: None (occurrence: None)
  Receive Date: 20090401
  Receipt Date: 20090205
  Transmission Date: 20091009
  Serious: Yes (Other)
  Sender: FDA-Public Use
  Company Number: PIR00365-2182009105659

PATIENT
  Age: 33 Year
  Sex: Female
  Weight: 71.6683 kg

DRUGS (1)
  1. HIBICLENS [Suspect]
     Dosage: 30 CC, 030
     Dates: start: 20081101, end: 20090101

REACTIONS (5)
  - CALCIFICATION OF MUSCLE [None]
  - ERYTHEMA [None]
  - SKIN WARM [None]
  - SWELLING [None]
  - WOUND HAEMORRHAGE [None]
